FAERS Safety Report 15862917 (Version 1)
Quarter: 2019Q1

REPORT INFORMATION
  Report Type: Spontaneous
  Country: US (occurrence: US)
  Receive Date: 20190124
  Receipt Date: 20190124
  Transmission Date: 20190417
  Serious: Yes (Hospitalization)
  Sender: FDA-Public Use
  Company Number: None

PATIENT
  Age: 61 Year
  Sex: Female

DRUGS (1)
  1. APIXABAN [Suspect]
     Active Substance: APIXABAN
     Route: 048
     Dates: start: 20181018

REACTIONS (2)
  - Haemoglobin decreased [None]
  - Haematocrit decreased [None]

NARRATIVE: CASE EVENT DATE: 20181019
